FAERS Safety Report 24403510 (Version 1)
Quarter: 2024Q4

REPORT INFORMATION
  Report Type: Spontaneous
  Country: US (occurrence: US)
  Receive Date: 20241007
  Receipt Date: 20241007
  Transmission Date: 20250115
  Serious: No
  Sender: ROCHE
  Company Number: US-ROCHE-3461929

PATIENT
  Age: 62 Year
  Sex: Male
  Weight: 94.62 kg

DRUGS (1)
  1. GAZYVA [Suspect]
     Active Substance: OBINUTUZUMAB
     Indication: Chronic lymphocytic leukaemia
     Dosage: 1000 MG/40 ML VIAL
     Route: 042
     Dates: start: 20231120

REACTIONS (6)
  - Nausea [Recovered/Resolved]
  - Vomiting [Recovered/Resolved]
  - Flushing [Recovered/Resolved]
  - Feeling hot [Recovered/Resolved]
  - Injection site warmth [Recovered/Resolved]
  - Retching [Recovered/Resolved]

NARRATIVE: CASE EVENT DATE: 20231120
